FAERS Safety Report 5530322-2 (Version None)
Quarter: 2007Q4

REPORT INFORMATION
  Report Type: 
  Country: None (occurrence: None)
  Receive Date: 20071130
  Receipt Date: 20070626
  Transmission Date: 20080405
  Serious: No
  Sender: FDA-Public Use
  Company Number: A0652911A

PATIENT
  Sex: Female

DRUGS (4)
  1. AUGMENTIN '250' [Suspect]
  2. CONCURRENT MEDICATIONS [Concomitant]
  3. IBUPROFEN [Concomitant]
  4. PAIN MEDICATIONS [Concomitant]

REACTIONS (1)
  - THERAPEUTIC RESPONSE UNEXPECTED [None]
